FAERS Safety Report 19237163 (Version 1)
Quarter: 2021Q2

REPORT INFORMATION
  Report Type: Spontaneous
  Country: US (occurrence: US)
  Receive Date: 20210509
  Receipt Date: 20210509
  Transmission Date: 20210717
  Serious: Yes (Life-Threatening, Disabling, Other)
  Sender: FDA-Public Use
  Company Number: None

PATIENT
  Age: 37 Year
  Sex: Female
  Weight: 105.75 kg

DRUGS (1)
  1. SPRAVATO [Suspect]
     Active Substance: ESKETAMINE
     Indication: ANXIETY
     Dosage: ?          OTHER FREQUENCY:2/WEEK;?
     Route: 055
     Dates: start: 20210401, end: 20210430

REACTIONS (5)
  - Dissociation [None]
  - Anxiety [None]
  - Delusion [None]
  - Mental disorder [None]
  - Fear [None]

NARRATIVE: CASE EVENT DATE: 20210503
